FAERS Safety Report 20606404 (Version 1)
Quarter: 2022Q1

REPORT INFORMATION
  Report Type: Spontaneous
  Country: AU (occurrence: AU)
  Receive Date: 20220317
  Receipt Date: 20220317
  Transmission Date: 20220424
  Serious: Yes (Death, Hospitalization, Other)
  Sender: FDA-Public Use
  Company Number: AU-NOVARTISPH-NVSC2022AU061401

PATIENT
  Age: 82 Year
  Sex: Male

DRUGS (1)
  1. ENTRESTO [Suspect]
     Active Substance: SACUBITRIL\VALSARTAN
     Indication: Product used for unknown indication
     Dosage: 50 MG, SACUBITRIL: 24 MG AND VALSARTAN: 26 MG, LOW DOSE
     Route: 065

REACTIONS (3)
  - Appendicitis perforated [Fatal]
  - Chronic kidney disease [Unknown]
  - Cardiac failure [Unknown]
